FAERS Safety Report 8534194-3 (Version None)
Quarter: 2012Q3

REPORT INFORMATION
  Report Type: 
  Country: None (occurrence: None)
  Receive Date: 20120724
  Receipt Date: 20120716
  Transmission Date: 20120928
  Serious: Yes (Life-Threatening, Hospitalization, Other)
  Sender: FDA-Public Use
  Company Number: IE-ACTELION-A-CH2011-49109

PATIENT
  Sex: Female
  Weight: 60 kg

DRUGS (10)
  1. TRACLEER [Suspect]
     Indication: DIGITAL ULCER
     Dosage: 62.5 MG, UNK
     Route: 048
     Dates: start: 20090101
  2. ZOFRAN [Concomitant]
  3. OXYCODONE HCL [Concomitant]
  4. MOTILIUM [Concomitant]
  5. MIRTAZAPINE [Concomitant]
  6. ILOPROST [Suspect]
  7. IMODIUM [Concomitant]
  8. ACTIQ [Concomitant]
  9. LANSOPRAZOLE [Concomitant]
  10. ZOPICLONE [Concomitant]

REACTIONS (4)
  - INTESTINAL OBSTRUCTION [None]
  - SURGERY [None]
  - CARDIAC ARREST [None]
  - SCLERODERMA RENAL CRISIS [None]
